FAERS Safety Report 21628556 (Version 1)
Quarter: 2022Q4

REPORT INFORMATION
  Report Type: Spontaneous
  Country: US (occurrence: None)
  Receive Date: 20221121
  Receipt Date: 20221121
  Transmission Date: 20230113
  Serious: Yes (Other)
  Sender: FDA-Public Use
  Company Number: None

PATIENT
  Age: 70 Year
  Sex: Male
  Weight: 89.1 kg

DRUGS (1)
  1. ROSUVASTATIN [Suspect]
     Active Substance: ROSUVASTATIN
     Indication: Hypercholesterolaemia
     Dosage: FREQUENCY : DAILY;?
     Route: 048
     Dates: start: 20100101, end: 20211101

REACTIONS (4)
  - Pain in extremity [None]
  - Gait disturbance [None]
  - Tenderness [None]
  - Enthesopathy [None]

NARRATIVE: CASE EVENT DATE: 20221121
